FAERS Safety Report 18105097 (Version 4)
Quarter: 2023Q4

REPORT INFORMATION
  Report Type: Spontaneous
  Country: US (occurrence: US)
  Receive Date: 20200804
  Receipt Date: 20231207
  Transmission Date: 20240110
  Serious: Yes (Life-Threatening, Other)
  Sender: FDA-Public Use
  Company Number: US-MLMSERVICE-20200722-2390744-1

PATIENT
  Age: 55 Year
  Sex: Male

DRUGS (4)
  1. CAPECITABINE [Suspect]
     Active Substance: CAPECITABINE
     Indication: Colon cancer stage II
     Dosage: 1650 MILLIGRAM, TWO TIMES A DAY
     Route: 048
     Dates: start: 2018
  2. OXALIPLATIN [Suspect]
     Active Substance: OXALIPLATIN
     Indication: Colon cancer stage II
     Dosage: UNK, 8 CYCLE
     Route: 065
     Dates: start: 2018
  3. FLUOROURACIL [Suspect]
     Active Substance: FLUOROURACIL
     Indication: Colon cancer
     Dosage: UNK, 8 CYCLE
     Route: 065
     Dates: start: 2018
  4. LEUCOVORIN [Suspect]
     Active Substance: LEUCOVORIN\LEUCOVORIN CALCIUM
     Indication: Colon cancer stage II
     Dosage: UNK, 8 CYCLE
     Route: 065
     Dates: start: 2018

REACTIONS (2)
  - Drug ineffective [Recovering/Resolving]
  - Neuropathy peripheral [Unknown]

NARRATIVE: CASE EVENT DATE: 20180101
